FAERS Safety Report 25876304 (Version 3)
Quarter: 2025Q4

REPORT INFORMATION
  Report Type: Spontaneous
  Country: US (occurrence: US)
  Receive Date: 20251003
  Receipt Date: 20251105
  Transmission Date: 20260117
  Serious: Yes (Death, Other)
  Sender: GILEAD
  Company Number: US-GILEAD-2025-0730768

PATIENT
  Age: 62 Year
  Sex: Male

DRUGS (2)
  1. LENACAPAVIR [Suspect]
     Active Substance: LENACAPAVIR
     Indication: HIV infection
     Dosage: 927MG UNDER THE SKIN EVERY 6 MONTHS
     Route: 058
     Dates: start: 202307
  2. LENACAPAVIR [Suspect]
     Active Substance: LENACAPAVIR
     Dosage: INJECT 927MG UNDER THE SKIN EVERY 6 MONTHS
     Route: 058
     Dates: start: 202401

REACTIONS (2)
  - Death [Fatal]
  - Injection site nodule [Unknown]
